FAERS Safety Report 5628216-7 (Version None)
Quarter: 2008Q1

REPORT INFORMATION
  Report Type: 
  Country: None (occurrence: None)
  Receive Date: 20080215
  Receipt Date: 20080206
  Transmission Date: 20080703
  Serious: Yes (Other)
  Sender: FDA-Public Use
  Company Number: BR-ABBOTT-08P-020-0437300-00

PATIENT
  Sex: Male
  Weight: 84 kg

DRUGS (8)
  1. HUMIRA [Suspect]
     Indication: RHEUMATOID ARTHRITIS
     Route: 058
     Dates: start: 20051001, end: 20061201
  2. CORTICOID [Concomitant]
     Indication: RHEUMATOID ARTHRITIS
  3. SIMVASTATIN [Concomitant]
     Indication: CARDIOVASCULAR DISORDER
     Route: 048
  4. INJECTABLE LOVASTATIN + SERUM [Concomitant]
     Indication: CARDIOVASCULAR DISORDER
  5. CILOSTAZOL [Concomitant]
     Indication: PERIPHERAL VASCULAR DISORDER
  6. MELOXICAM [Concomitant]
     Indication: RHEUMATOID ARTHRITIS
  7. PAROXETINE HCL [Concomitant]
     Indication: NERVOUSNESS
  8. INFANTILC ASPIRIN [Concomitant]
     Indication: CARDIOVASCULAR DISORDER

REACTIONS (8)
  - DISLOCATION OF JOINT PROSTHESIS [None]
  - FALL [None]
  - FEMUR FRACTURE [None]
  - GASTRIC ULCER [None]
  - OSTEITIS [None]
  - SCAR [None]
  - TOE AMPUTATION [None]
  - TUBERCULOSIS [None]
